FAERS Safety Report 5518801-5 (Version None)
Quarter: 2007Q4

REPORT INFORMATION
  Report Type: 
  Country: None (occurrence: None)
  Receive Date: 20071115
  Receipt Date: 20071114
  Transmission Date: 20080405
  Serious: Yes (Other)
  Sender: FDA-Public Use
  Company Number: US-ALLERGAN-0711408US

PATIENT
  Sex: Male

DRUGS (1)
  1. BOTOX [Suspect]
     Indication: NERVOUS SYSTEM DISORDER
     Dosage: 900 UNITS, UNK

REACTIONS (1)
  - BOTULISM [None]
